FAERS Safety Report 14147818 (Version 1)
Quarter: 2017Q4

REPORT INFORMATION
  Report Type: Spontaneous
  Country: SE (occurrence: SE)
  Receive Date: 20171031
  Receipt Date: 20171031
  Transmission Date: 20180321
  Serious: Yes (Other)
  Sender: FDA-Public Use
  Company Number: SE-BAUSCH-BL-2017-030327

PATIENT
  Age: 85 Year
  Sex: Female

DRUGS (5)
  1. VAGIFEM [Concomitant]
     Active Substance: ESTRADIOL
  2. IMOVANE [Concomitant]
     Active Substance: ZOPICLONE
  3. OMEPRAZOLE. [Concomitant]
     Active Substance: OMEPRAZOLE
  4. HIPREX [Concomitant]
     Active Substance: METHENAMINE HIPPURATE
  5. ALDARA [Suspect]
     Active Substance: IMIQUIMOD
     Indication: BASAL CELL CARCINOMA
     Dosage: FIVE EVENINGS PER WEEK DURING SIX WEEKS
     Route: 065
     Dates: start: 20170717, end: 20170824

REACTIONS (1)
  - Sudden hearing loss [Not Recovered/Not Resolved]

NARRATIVE: CASE EVENT DATE: 20170728
